FAERS Safety Report 7755445-9 (Version None)
Quarter: 2011Q3

REPORT INFORMATION
  Report Type: 
  Country: None (occurrence: None)
  Receive Date: 20110904
  Receipt Date: 20110831
  Transmission Date: 20111222
  Serious: Yes (Other)
  Sender: FDA-Public Use
  Company Number: AUR-APL-2011-04901

PATIENT
  Sex: Female
  Weight: 54.4316 kg

DRUGS (6)
  1. LISINOPRIL [Concomitant]
  2. VANCOCIN (VANCOMYCIN HYDROCHLORIDE) [Concomitant]
  3. ZOLPIDEM [Suspect]
     Indication: INSOMNIA
     Dosage: (1 DOSAGE FORMS, AT
  4. METOPROLOL SUCCINATE [Concomitant]
  5. FUROSEMIDE [Concomitant]
  6. SIMVASTATIN [Concomitant]

REACTIONS (2)
  - PRODUCT SUBSTITUTION ISSUE [None]
  - MIDDLE INSOMNIA [None]
